FAERS Safety Report 9347690 (Version 4)
Quarter: 2013Q3

REPORT INFORMATION
  Report Type: Report from Study
  Country: AR (occurrence: AR)
  Receive Date: 20130614
  Receipt Date: 20130910
  Transmission Date: 20140515
  Serious: Yes (Hospitalization, Other)
  Sender: FDA-Public Use
  Company Number: AR-PFIZER INC-2013175877

PATIENT
  Age: 73 Year
  Sex: Female

DRUGS (3)
  1. METHYLPREDNISOLONE ACETATE [Suspect]
     Dosage: UNK
     Dates: start: 20070428
  2. MYCOPHENOLATE MOFETIL [Suspect]
     Dosage: UNK
     Dates: start: 20070428
  3. BELATACEPT [Suspect]
     Indication: RENAL TRANSPLANT
     Dosage: UNK
     Route: 042
     Dates: start: 20070427

REACTIONS (3)
  - Erysipelas [Recovered/Resolved]
  - Limb injury [Not Recovered/Not Resolved]
  - Convulsion [Recovered/Resolved]
